FAERS Safety Report 7506326-7 (Version None)
Quarter: 2011Q2

REPORT INFORMATION
  Report Type: 
  Country: None (occurrence: None)
  Receive Date: 20110526
  Receipt Date: 20101213
  Transmission Date: 20111010
  Serious: No
  Sender: FDA-Public Use
  Company Number: US-ABBOTT-10P-163-0691731-00

PATIENT
  Sex: Male
  Weight: 78.088 kg

DRUGS (1)
  1. ZEMPLAR [Suspect]
     Indication: THYROID DISORDER
     Dates: start: 20101107, end: 20101111

REACTIONS (1)
  - HEART RATE INCREASED [None]
